FAERS Safety Report 6553961-9 (Version None)
Quarter: 2010Q1

REPORT INFORMATION
  Report Type: 
  Country: None (occurrence: None)
  Receive Date: 20100127
  Receipt Date: 20100118
  Transmission Date: 20100710
  Serious: Yes (Hospitalization, Other)
  Sender: FDA-Public Use
  Company Number: GB-JNJFOC-20100106440

PATIENT
  Age: 29 Year
  Sex: Female

DRUGS (10)
  1. FENTANYL CITRATE [Suspect]
     Indication: POSTOPERATIVE ANALGESIA
     Route: 065
  2. MORPHINE [Suspect]
     Indication: POSTOPERATIVE ANALGESIA
     Route: 042
  3. ANTIBIOTIC [Suspect]
     Indication: DRUG USE FOR UNKNOWN INDICATION
  4. RANITIDINE [Concomitant]
  5. EPHEDRINE [Concomitant]
     Indication: BLOOD PRESSURE SYSTOLIC
     Route: 040
  6. ISOFLURANE [Concomitant]
  7. NITROUS OXIDE [Concomitant]
  8. SODIUM CITRATE [Concomitant]
  9. SUCCINYLCHOLINE CHLORIDE [Concomitant]
  10. THIOPENTAL SODIUM [Concomitant]

REACTIONS (5)
  - ACIDOSIS [None]
  - ENCEPHALOPATHY [None]
  - HYPOGLYCAEMIA [None]
  - HYPOTENSION [None]
  - OLIGURIA [None]
